FAERS Safety Report 5425105-8 (Version None)
Quarter: 2007Q3

REPORT INFORMATION
  Report Type: 
  Country: None (occurrence: None)
  Receive Date: 20070824
  Receipt Date: 20070821
  Transmission Date: 20080115
  Serious: Yes (Other)
  Sender: FDA-Public Use
  Company Number: GB-MERCK-0708GBR00059

PATIENT
  Age: 62 Year
  Sex: Male

DRUGS (4)
  1. ZOCOR [Suspect]
     Route: 065
  2. ASPIRIN [Suspect]
     Route: 065
  3. CARBAMAZEPINE [Suspect]
     Route: 065
  4. ATENOLOL [Suspect]
     Route: 065

REACTIONS (3)
  - ATRIAL FLUTTER [None]
  - ATRIOVENTRICULAR BLOCK [None]
  - TACHYCARDIA [None]
